FAERS Safety Report 19470301 (Version 3)
Quarter: 2021Q3

REPORT INFORMATION
  Report Type: Other
  Country: US (occurrence: US)
  Receive Date: 20210629
  Receipt Date: 20210917
  Transmission Date: 20211014
  Serious: No
  Sender: FDA-Public Use
  Company Number: US-NEUROCRINE BIOSCIENCES INC.-2021NBI03338

PATIENT

DRUGS (6)
  1. ONGENTYS [Suspect]
     Active Substance: OPICAPONE
     Indication: PARKINSON^S DISEASE
     Dosage: 50 MILLIGRAM, QD
     Route: 048
     Dates: start: 202106
  2. CLONAZEPAM. [Suspect]
     Active Substance: CLONAZEPAM
     Indication: ANXIETY
     Dosage: UNK
     Route: 065
  3. PRAMIPEXOLE DIHYDROCHLORIDE. [Concomitant]
     Active Substance: PRAMIPEXOLE DIHYDROCHLORIDE
     Dosage: UNK
  4. CARBIDOPA LEVODOPA [Concomitant]
     Active Substance: CARBIDOPA\LEVODOPA
     Dosage: UNK
  5. METHIMAZOLE. [Concomitant]
     Active Substance: METHIMAZOLE
     Dosage: UNK
  6. D200 [Concomitant]
     Dosage: UNK

REACTIONS (10)
  - Blood pressure increased [Recovered/Resolved with Sequelae]
  - Accidental overdose [Unknown]
  - Musculoskeletal stiffness [Not Recovered/Not Resolved]
  - Anxiety [Recovered/Resolved with Sequelae]
  - Dizziness [Not Recovered/Not Resolved]
  - Back pain [Not Recovered/Not Resolved]
  - Pain in extremity [Not Recovered/Not Resolved]
  - Dyspnoea [Recovered/Resolved with Sequelae]
  - Drug interaction [Unknown]
  - Drug ineffective [Unknown]

NARRATIVE: CASE EVENT DATE: 2021
